FAERS Safety Report 6131248-6 (Version None)
Quarter: 2009Q1

REPORT INFORMATION
  Report Type: 
  Country: None (occurrence: None)
  Receive Date: 20090325
  Receipt Date: 20080201
  Transmission Date: 20090719
  Serious: No
  Sender: FDA-Public Use
  Company Number: US-BRISTOL-MYERS SQUIBB COMPANY-14064679

PATIENT

DRUGS (5)
  1. ERBITUX [Suspect]
  2. IRINOTECAN HCL [Suspect]
  3. FLUOROURACIL [Suspect]
  4. FOLINIC ACID [Suspect]
  5. OXALIPLATIN [Suspect]

REACTIONS (1)
  - DIARRHOEA [None]
